FAERS Safety Report 4718665-3 (Version None)
Quarter: 2005Q3

REPORT INFORMATION
  Report Type: 
  Country: None (occurrence: None)
  Receive Date: 20050719
  Receipt Date: 20041117
  Transmission Date: 20060218
  Serious: Yes (Other)
  Sender: FDA-Public Use
  Company Number: 2004240753US

PATIENT
  Sex: Male
  Weight: 93.42 kg

DRUGS (8)
  1. CELEBREX [Suspect]
     Indication: ARTHRALGIA
     Dosage: 200 MG (200 MG, 1 IN 1 D), ORAL
     Route: 048
     Dates: start: 20040511, end: 20040606
  2. LASIX [Concomitant]
  3. ZOLOFT [Concomitant]
  4. POTASSIUM CHLORIDE [Concomitant]
  5. PLENDIL [Concomitant]
  6. SOTALOL HCL [Concomitant]
  7. LOTENSIN [Concomitant]
  8. ZETIA [Concomitant]

REACTIONS (1)
  - BLOOD PRESSURE INCREASED [None]
